FAERS Safety Report 4934194-6 (Version None)
Quarter: 2006Q1

REPORT INFORMATION
  Report Type: 
  Country: None (occurrence: None)
  Receive Date: 20060301
  Receipt Date: 20060216
  Transmission Date: 20060701
  Serious: Yes (Death, Other)
  Sender: FDA-Public Use
  Company Number: 2005079256

PATIENT

DRUGS (2)
  1. CELECOXIB (CELECOXIB) [Suspect]
     Indication: ILL-DEFINED DISORDER
     Dosage: 800 MG (400 MG, 2 IN 1 D), ORAL
     Route: 048
  2. GEMCITABINE [Suspect]
     Indication: PANCREATIC CARCINOMA
     Dosage: (10 MG/M2,) INTRAVENOUS
     Route: 042

REACTIONS (2)
  - CARDIOVASCULAR DISORDER [None]
  - THROMBOSIS [None]
